FAERS Safety Report 24259140 (Version 3)
Quarter: 2024Q3

REPORT INFORMATION
  Report Type: Report from Study
  Country: CN (occurrence: CN)
  Receive Date: 20240828
  Receipt Date: 20240924
  Transmission Date: 20241017
  Serious: Yes (Hospitalization)
  Sender: ACCORD
  Company Number: CN-HENLIUS-24CN016517

PATIENT
  Age: 44 Year
  Sex: Female
  Weight: 45.8 kg

DRUGS (7)
  1. DOCETAXEL [Suspect]
     Active Substance: DOCETAXEL\DOCETAXEL ANHYDROUS
     Indication: Breast cancer
     Dosage: 112 MILLIGRAM, ONCE EVERY THREE WEEKS?(Q3W), IV DRIP
     Route: 042
     Dates: start: 20240723, end: 20240723
  2. TRASTUZUMAB [Suspect]
     Active Substance: TRASTUZUMAB
     Indication: Breast cancer
     Dosage: STRENGTH: 150 MG, Q3W (ONCE EVERY THREE WEEKS), IV DRIP
     Route: 042
     Dates: start: 20240723, end: 20240723
  3. PERTUZUMAB [Suspect]
     Active Substance: PERTUZUMAB
     Indication: Breast cancer
     Dosage: 840 MILLIGRAM, ONCE EVERY THREE WEEKS?(Q3W), IV DRIP
     Route: 042
     Dates: start: 20240723, end: 20240723
  4. CELECOXIB [Concomitant]
     Active Substance: CELECOXIB
     Indication: Breast pain
     Dosage: 200 MILLIGRAM
     Route: 048
     Dates: start: 20240722, end: 20240801
  5. DOCETAXEL [Suspect]
     Active Substance: DOCETAXEL\DOCETAXEL ANHYDROUS
     Indication: Breast cancer
     Dosage: 112 MILLIGRAM, ONCE EVERY THREE WEEKS?(Q3W), IV DRIP
     Route: 042
     Dates: start: 20240815
  6. TRASTUZUMAB [Suspect]
     Active Substance: TRASTUZUMAB
     Indication: Breast cancer
     Dosage: STRENGTH: 150 MG,  Q3W (ONCE EVERY THREE WEEKS), IV DRIP
     Route: 042
     Dates: start: 20240815
  7. PERTUZUMAB [Suspect]
     Active Substance: PERTUZUMAB
     Indication: Breast cancer
     Dosage: 840 MILLIGRAM, ONCE EVERY THREE WEEKS?(Q3W), IV DRIP
     Route: 042
     Dates: start: 20240815

REACTIONS (1)
  - Mouth ulceration [Recovered/Resolved]

NARRATIVE: CASE EVENT DATE: 20240802
